FAERS Safety Report 7698770-2 (Version None)
Quarter: 2011Q3

REPORT INFORMATION
  Report Type: 
  Country: None (occurrence: None)
  Receive Date: 20110819
  Receipt Date: 20110817
  Transmission Date: 20111222
  Serious: Yes (Hospitalization)
  Sender: FDA-Public Use
  Company Number: GB-AMGEN-GBRSP2011042091

PATIENT
  Age: 56 Year
  Sex: Female
  Weight: 90 kg

DRUGS (5)
  1. DAPSONE [Concomitant]
     Dosage: 100 MG, UNK
     Route: 048
  2. PREDNISOLONE [Concomitant]
     Indication: SYSTEMIC LUPUS ERYTHEMATOSUS
     Dosage: 9 MG, UNK
     Route: 048
  3. OMEPRAZOLE [Concomitant]
     Dosage: 20 MG, UNK
     Route: 048
  4. ROMIPLOSTIM [Suspect]
     Indication: IDIOPATHIC THROMBOCYTOPENIC PURPURA
     Dosage: 500 A?G, UNK
     Route: 058
     Dates: start: 20110701, end: 20110715
  5. FOLIC ACID [Concomitant]
     Dosage: 5 MG, UNK
     Route: 048

REACTIONS (2)
  - DEEP VEIN THROMBOSIS [None]
  - PAIN IN EXTREMITY [None]
